FAERS Safety Report 9843121 (Version 1)
Quarter: 2014Q1

REPORT INFORMATION
  Report Type: Spontaneous
  Country: JP (occurrence: JP)
  Receive Date: 20140124
  Receipt Date: 20140124
  Transmission Date: 20141002
  Serious: Yes (Other)
  Sender: FDA-Public Use
  Company Number: JP-BAXTER-2014BAX003675

PATIENT
  Age: 65 Year
  Sex: Female

DRUGS (2)
  1. ENDOXAN 1G [Suspect]
     Indication: SCLERODERMA
     Route: 042
     Dates: start: 201311
  2. PREDONINE [Concomitant]
     Indication: SCLERODERMA
     Route: 048

REACTIONS (1)
  - Intestinal obstruction [Recovered/Resolved]
